FAERS Safety Report 8994605 (Version 1)
Quarter: 2012Q4

REPORT INFORMATION
  Report Type: Spontaneous
  Country: US (occurrence: None)
  Receive Date: 20121221
  Receipt Date: 20121221
  Transmission Date: 20130627
  Serious: Yes (Hospitalization)
  Sender: FDA-Public Use
  Company Number: METO20120244

PATIENT
  Age: 78 Year
  Sex: Female

DRUGS (3)
  1. METOCLOPRAMIDE HYDROCHLORIDE [Suspect]
     Indication: DIABETIC GASTROPARESIS
     Route: 048
     Dates: start: 2006, end: 2012
  2. LORAZEPAM(LORAZEPAM) (1 MILLIGRAM, TABLETS) (LORAZEPAM) [Concomitant]
  3. FLUOXETINE (FLUOXETINE) (40 MILLIGRAM, UNKNOWN) [Concomitant]

REACTIONS (8)
  - Respiratory dyskinesia [None]
  - Chest pain [None]
  - Headache [None]
  - Respiratory alkalosis [None]
  - Anxiety [None]
  - Choking sensation [None]
  - Tardive dyskinesia [None]
  - Chorea [None]
